FAERS Safety Report 8030160-5 (Version None)
Quarter: 2012Q1

REPORT INFORMATION
  Report Type: 
  Country: None (occurrence: None)
  Receive Date: 20120105
  Receipt Date: 20111228
  Transmission Date: 20120608
  Serious: Yes (Death)
  Sender: FDA-Public Use
  Company Number: 2011MA018128

PATIENT
  Age: 52 Year
  Sex: Female
  Weight: 55.7924 kg

DRUGS (30)
  1. REMERON [Suspect]
     Indication: DEPRESSION
     Dosage: 45 MH;HS;PO
     Route: 048
  2. ALLEGRA [Concomitant]
  3. BENADRYL [Concomitant]
  4. XANAX [Concomitant]
  5. TRAMADOL HCL [Suspect]
     Indication: PAIN
     Dosage: 50 MG;Q4H;PO
     Route: 048
  6. AMITRIPTYLINE HCL [Suspect]
     Indication: DEPRESSION
     Dosage: 75 MG;HS;PO
     Route: 048
  7. ATIVAN [Suspect]
     Indication: ANXIETY
     Dosage: 0.5 MG;BID;PO
     Route: 048
  8. WARFARIN SODIUM [Concomitant]
  9. PLAVIX [Concomitant]
  10. PAROXETINE [Concomitant]
  11. HYDROMORPHONE HCL [Concomitant]
  12. RISPERDAL [Concomitant]
  13. HYDROCODONE W/ACETAMINEPHEN [Concomitant]
  14. LUNESTA [Concomitant]
  15. SPIRIVA [Concomitant]
  16. CYMBALTA [Concomitant]
  17. TOPIRAMATE [Concomitant]
  18. POTASSIUM CHLORIDE [Concomitant]
  19. LOPERAMIDE [Concomitant]
  20. COMBIVENT [Concomitant]
  21. LASIX [Concomitant]
  22. FESOTERODINE; PLACE (CODE NOT BROKEN) [Suspect]
     Indication: HYPERTONIC BLADDER
  23. GABAPENTIN [Concomitant]
  24. CHANTIX [Concomitant]
  25. CYCLOBENZAPRINE HCL [Concomitant]
  26. VALIUM [Concomitant]
  27. NEXIUM [Concomitant]
  28. LORAZEPAM [Concomitant]
  29. ACETYLSALICLIC ACID [Concomitant]
  30. HYDROCODONE BITARTRATE [Concomitant]

REACTIONS (5)
  - SUICIDE ATTEMPT [None]
  - CARDIOMEGALY [None]
  - OVERDOSE [None]
  - UNRESPONSIVE TO STIMULI [None]
  - PULMONARY EMBOLISM [None]
